FAERS Safety Report 8983123 (Version 2)
Quarter: 2013Q1

REPORT INFORMATION
  Report Type: Spontaneous
  Country: US (occurrence: US)
  Receive Date: 20121224
  Receipt Date: 20130212
  Transmission Date: 20140127
  Serious: No
  Sender: FDA-Public Use
  Company Number: US-009507513-1212USA008011

PATIENT
  Age: 59 Year
  Sex: Male
  Weight: 88.44 kg

DRUGS (9)
  1. PEG-INTRON [Suspect]
     Indication: HEPATITIS C
     Dosage: 120 MCG/0.5 ML (4 SYRINGES)
     Route: 058
  2. RIBAVIRIN [Suspect]
     Route: 048
  3. TELAPREVIR [Suspect]
     Route: 048
  4. LORAZEPAM [Concomitant]
     Dosage: 2 MG/ML
     Route: 048
  5. ALLEGRA-D [Concomitant]
     Dosage: UNK, Q12H
     Route: 048
  6. PRILOSEC [Concomitant]
     Route: 048
  7. ENSURE [Concomitant]
     Dosage: LIQUID VANILLA
     Route: 048
  8. FLONASE [Concomitant]
     Dosage: FLONASE SPR 0.05 PERCENT
  9. IMODIUM [Concomitant]
     Dosage: ADVANCED TABLET

REACTIONS (3)
  - Injection site erythema [Unknown]
  - Fatigue [Unknown]
  - Diarrhoea [Not Recovered/Not Resolved]
